FAERS Safety Report 22649963 (Version 1)
Quarter: 2023Q2

REPORT INFORMATION
  Report Type: Report from Study
  Country: PH (occurrence: PH)
  Receive Date: 20230628
  Receipt Date: 20230628
  Transmission Date: 20230722
  Serious: Yes (Other)
  Sender: FDA-Public Use
  Company Number: PH-OTSUKA-2023_016961

PATIENT
  Sex: Female

DRUGS (1)
  1. TOLVAPTAN [Suspect]
     Active Substance: TOLVAPTAN
     Indication: Glomerular filtration rate decreased
     Dosage: 15 MG, QID (4 TIMES A DAY)
     Route: 048
     Dates: end: 20230618

REACTIONS (5)
  - Acidosis [Recovered/Resolved]
  - Dry skin [Recovered/Resolved]
  - Abdominal distension [Recovered/Resolved]
  - Thirst [Recovered/Resolved]
  - Product use in unapproved indication [Unknown]
